FAERS Safety Report 25362529 (Version 1)
Quarter: 2025Q2

REPORT INFORMATION
  Report Type: Spontaneous
  Country: US (occurrence: None)
  Receive Date: 20250524
  Receipt Date: 20250524
  Transmission Date: 20250717
  Serious: Yes (Hospitalization)
  Sender: FDA-CTU
  Company Number: None

PATIENT
  Age: 30 Month
  Sex: Male
  Weight: 11.6 kg

DRUGS (4)
  1. CARBOPLATIN [Suspect]
     Active Substance: CARBOPLATIN
  2. CYCLOPHOSPHAMIDE [Suspect]
     Active Substance: CYCLOPHOSPHAMIDE
  3. ETOPOSIDE [Suspect]
     Active Substance: ETOPOSIDE
  4. FILGRASTIM [Suspect]
     Active Substance: FILGRASTIM

REACTIONS (9)
  - Hypertensive crisis [None]
  - Haemoglobin increased [None]
  - Proteinuria [None]
  - Chronic kidney disease [None]
  - Denys-Drash syndrome [None]
  - Febrile neutropenia [None]
  - Rhinovirus infection [None]
  - Enterovirus infection [None]
  - Oedema peripheral [None]

NARRATIVE: CASE EVENT DATE: 20250421
